FAERS Safety Report 8792085 (Version 1)
Quarter: 2012Q4

REPORT INFORMATION
  Report Type: Report from Study
  Country: JP (occurrence: JP)
  Receive Date: 20120918
  Receipt Date: 20120918
  Transmission Date: 20130627
  Serious: Yes (Death, Hospitalization)
  Sender: FDA-Public Use
  Company Number: JP-MERCK-1208JPN012331

PATIENT

DRUGS (16)
  1. TEMODAL [Suspect]
     Indication: ANAPLASTIC ASTROCYTOMA
     Dosage: 75 mg/sqm,qd
     Route: 048
     Dates: start: 20091005, end: 20091124
  2. TEMODAL [Suspect]
     Dosage: 150 mg/sqm, qd
     Route: 048
     Dates: start: 20091222, end: 20091226
  3. TEMODAL [Suspect]
     Dosage: 200mg/sqm,qd
     Route: 048
     Dates: start: 20090123, end: 20100119
  4. TEMODAL [Suspect]
     Dosage: 200 mg/sqm, qd
     Route: 048
     Dates: start: 20100216, end: 20100220
  5. TEMODAL [Suspect]
     Dosage: 200mg/sqm, qd
     Route: 048
     Dates: start: 20100316, end: 20100320
  6. TEMODAL [Suspect]
     Dosage: 200mg/sqm, qd
     Route: 048
     Dates: start: 20100413, end: 20100417
  7. TEMODAL [Suspect]
     Dosage: 200mg/sqm, qd
     Route: 048
     Dates: start: 20100511, end: 20100515
  8. TEMODAL [Suspect]
     Dosage: 200mg/sqm, qd
     Route: 048
     Dates: start: 20100608, end: 20100612
  9. TEMODAL [Suspect]
     Dosage: 200mg/sqm, qd
     Route: 048
     Dates: start: 20100706, end: 20100710
  10. TEMODAL [Suspect]
     Dosage: 200mg/sqm, qd
     Route: 048
     Dates: start: 20100810, end: 20100814
  11. TEMODAL [Suspect]
     Dosage: 200mg/sqm, qd
     Route: 048
     Dates: start: 20100907, end: 20100911
  12. MAGMITT [Concomitant]
     Indication: PROPHYLAXIS
     Dosage: UNK
     Route: 048
     Dates: start: 20091005, end: 20101006
  13. ZOFRAN ZYDIS [Concomitant]
     Indication: PROPHYLAXIS
     Dosage: UNK
     Route: 048
     Dates: start: 20091005, end: 20100911
  14. FAMOSTAGINE [Concomitant]
     Indication: PROPHYLAXIS
     Dosage: UNK
     Route: 048
     Dates: start: 20091006, end: 20100314
  15. CEFAMEZIN [Concomitant]
     Indication: PROPHYLAXIS
     Dosage: UNK
     Route: 041
     Dates: start: 20091015, end: 20091021
  16. BAKTAR [Concomitant]
     Indication: ANTIFUNGAL PROPHYLAXIS
     Dosage: UNK
     Route: 048
     Dates: start: 20090121, end: 20101003

REACTIONS (7)
  - Nausea [Recovered/Resolved]
  - Brain oedema [Recovered/Resolved]
  - Neutrophil count decreased [Recovered/Resolved]
  - Lymphocyte count decreased [Recovered/Resolved]
  - Disease progression [Fatal]
  - Altered state of consciousness [Unknown]
  - Dysphagia [Unknown]
